FAERS Safety Report 19607765 (Version 1)
Quarter: 2021Q3

REPORT INFORMATION
  Report Type: Spontaneous
  Country: CN (occurrence: CN)
  Receive Date: 20210726
  Receipt Date: 20210726
  Transmission Date: 20211014
  Serious: Yes (Other)
  Sender: FDA-Public Use
  Company Number: CN-JIANGSU HENGRUI MEDICINE CO., LTD.-2114255

PATIENT
  Age: 47 Year
  Sex: Male

DRUGS (6)
  1. OXALIPLATIN INJECTION USP, 5 MG/ML, PACKAGED IN 50 MG/10 ML AND 100 MG [Suspect]
     Active Substance: OXALIPLATIN
     Indication: RECTAL CANCER
     Route: 041
     Dates: start: 20200325
  2. OLMESARTAN MEDOXOMIL. [Concomitant]
     Active Substance: OLMESARTAN MEDOXOMIL
     Route: 048
  3. BISOPROLOL. [Concomitant]
     Active Substance: BISOPROLOL FUMARATE
     Route: 048
  4. OXALIPLATIN. [Suspect]
     Active Substance: OXALIPLATIN
  5. CAPECITABINE TABLETS [Suspect]
     Active Substance: CAPECITABINE
  6. NIFEDIPINE. [Concomitant]
     Active Substance: NIFEDIPINE
     Route: 048

REACTIONS (6)
  - ECG signs of myocardial ischaemia [Recovering/Resolving]
  - Immune thrombocytopenia [Recovered/Resolved]
  - Acute kidney injury [Recovered/Resolved]
  - Hypersensitivity [Recovered/Resolved]
  - Myelosuppression [Unknown]
  - Myocardial necrosis marker increased [Recovering/Resolving]

NARRATIVE: CASE EVENT DATE: 20200325
